FAERS Safety Report 5086795-5 (Version None)
Quarter: 2006Q3

REPORT INFORMATION
  Report Type: 
  Country: None (occurrence: None)
  Receive Date: 20060823
  Receipt Date: 20050815
  Transmission Date: 20061208
  Serious: Yes (Death)
  Sender: FDA-Public Use
  Company Number: DE-SANOFI-SYNTHELABO-F01200501538

PATIENT
  Sex: Male

DRUGS (8)
  1. PANTOZOL [Concomitant]
     Dates: start: 20050518, end: 20050729
  2. FRAGMIN [Concomitant]
     Dates: start: 20050518, end: 20050720
  3. AVASTIN [Suspect]
     Indication: COLON CANCER
     Dosage: Q2W OR Q3W
     Route: 042
  4. CAPECITABINE [Suspect]
     Indication: COLON CANCER
     Route: 048
  5. OXALIPLATIN [Suspect]
     Indication: COLON CANCER
     Dosage: Q2W OR Q3W
     Route: 042
  6. GRANISETRON  HCL [Concomitant]
     Dates: start: 20050518, end: 20050720
  7. DEXAMETHASONE [Concomitant]
     Dates: start: 20050518, end: 20050720
  8. DALTEPARIN SODIUM [Concomitant]
     Dates: start: 20050518, end: 20050729

REACTIONS (17)
  - ACUTE PULMONARY OEDEMA [None]
  - ARRHYTHMIA [None]
  - ARTERIOSCLEROSIS CORONARY ARTERY [None]
  - ARTERIOSPASM CORONARY [None]
  - ASPIRATION [None]
  - CARDIAC FAILURE ACUTE [None]
  - CARDIOMEGALY [None]
  - COMPLETED SUICIDE [None]
  - CONDUCTION DISORDER [None]
  - DEATH [None]
  - INJURY ASPHYXIATION [None]
  - LEFT VENTRICULAR FAILURE [None]
  - POLYTRAUMATISM [None]
  - PULMONARY CONGESTION [None]
  - PULMONARY HAEMORRHAGE [None]
  - VASODILATATION [None]
  - VOMITING [None]
